FAERS Safety Report 9321824 (Version 1)
Quarter: 2013Q2

REPORT INFORMATION
  Report Type: Spontaneous
  Country: US (occurrence: US)
  Receive Date: 20130531
  Receipt Date: 20130531
  Transmission Date: 20140414
  Serious: No
  Sender: FDA-Public Use
  Company Number: US-ABBOTT-12P-163-0995699-00

PATIENT
  Age: 67 Year
  Sex: Female

DRUGS (1)
  1. MARINOL [Suspect]
     Indication: PRODUCT USED FOR UNKNOWN INDICATION
     Dosage: 1 CAPSULE OPENED INTO G-TUBE DAILY
     Dates: start: 20121012

REACTIONS (1)
  - Incorrect route of drug administration [Not Recovered/Not Resolved]
